FAERS Safety Report 10204552 (Version 3)
Quarter: 2014Q3

REPORT INFORMATION
  Report Type: Report from Study
  Country: US (occurrence: US)
  Receive Date: 20140529
  Receipt Date: 20140725
  Transmission Date: 20150326
  Serious: Yes (Hospitalization, Disabling)
  Sender: FDA-Public Use
  Company Number: US-SA-2014SA016770

PATIENT
  Age: 41 Year
  Sex: Female

DRUGS (5)
  1. AUBAGIO [Suspect]
     Active Substance: TERIFLUNOMIDE
     Indication: MULTIPLE SCLEROSIS
     Route: 048
     Dates: start: 20140202
  2. PREDNISONE. [Concomitant]
     Active Substance: PREDNISONE
  3. LYRICA [Suspect]
     Active Substance: PREGABALIN
     Indication: PAIN
     Route: 065
  4. XANAX [Concomitant]
     Active Substance: ALPRAZOLAM
  5. LYRICA [Suspect]
     Active Substance: PREGABALIN
     Indication: PAIN
     Route: 065

REACTIONS (7)
  - Anxiety [Not Recovered/Not Resolved]
  - Peripheral swelling [Recovering/Resolving]
  - Decreased appetite [Unknown]
  - Diarrhoea [Unknown]
  - Asthenia [Not Recovered/Not Resolved]
  - Headache [Recovered/Resolved]
  - Pain [Unknown]

NARRATIVE: CASE EVENT DATE: 201312
